FAERS Safety Report 6646312-2 (Version None)
Quarter: 2010Q1

REPORT INFORMATION
  Report Type: 
  Country: None (occurrence: None)
  Receive Date: 20100323
  Receipt Date: 20100212
  Transmission Date: 20100710
  Serious: No
  Sender: FDA-Public Use
  Company Number: US-BAYER-201014644NA

PATIENT
  Sex: Female

DRUGS (1)
  1. EOVIST [Suspect]
     Indication: NUCLEAR MAGNETIC RESONANCE IMAGING
     Dosage: TOTAL DAILY DOSE: 6 ML
     Route: 042

REACTIONS (3)
  - DYSPNOEA [None]
  - HEART RATE INCREASED [None]
  - RESPIRATORY RATE INCREASED [None]
